FAERS Safety Report 4664098-8 (Version None)
Quarter: 2005Q2

REPORT INFORMATION
  Report Type: 
  Country: None (occurrence: None)
  Receive Date: 20050516
  Receipt Date: 20050501
  Transmission Date: 20051028
  Serious: Yes (Death)
  Sender: FDA-Public Use
  Company Number: MC200500406

PATIENT
  Sex: 0

DRUGS (3)
  1. ANGIOMAX [Suspect]
     Indication: ANTICOAGULANT THERAPY
  2. ACETYLSALICYLIC ACID SRT [Concomitant]
  3. PLAVIX [Concomitant]

REACTIONS (1)
  - DEATH [None]
